FAERS Safety Report 9265570 (Version 4)
Quarter: 2014Q3

REPORT INFORMATION
  Report Type: Spontaneous
  Country: US (occurrence: US)
  Receive Date: 20130501
  Receipt Date: 20140904
  Transmission Date: 20150326
  Serious: No
  Sender: FDA-Public Use
  Company Number: US-009507513-1304USA016960

PATIENT
  Sex: Male

DRUGS (1)
  1. PROPECIA [Suspect]
     Active Substance: FINASTERIDE
     Indication: ALOPECIA
     Dosage: 1 MG, QD
     Route: 048
     Dates: start: 2003, end: 2012

REACTIONS (11)
  - Dyshidrotic eczema [Unknown]
  - Oropharyngeal pain [Unknown]
  - Cough [Unknown]
  - Erectile dysfunction [Not Recovered/Not Resolved]
  - Milia [Unknown]
  - Hair disorder [Unknown]
  - Skin papilloma [Unknown]
  - Gynaecomastia [Not Recovered/Not Resolved]
  - Skin papilloma [Unknown]
  - Biopsy site unspecified abnormal [Unknown]
  - Therapeutic response decreased [Unknown]

NARRATIVE: CASE EVENT DATE: 20030407
